FAERS Safety Report 8609178-7 (Version None)
Quarter: 2012Q3

REPORT INFORMATION
  Report Type: 
  Country: None (occurrence: None)
  Receive Date: 20120821
  Receipt Date: 20120806
  Transmission Date: 20120928
  Serious: Yes (Hospitalization)
  Sender: FDA-Public Use
  Company Number: GB-WATSON-2012-14458

PATIENT
  Age: 59 Year
  Sex: Female
  Weight: 83.5 kg

DRUGS (7)
  1. QUETIAPINE [Concomitant]
     Indication: PRODUCT USED FOR UNKNOWN INDICATION
     Dosage: UNK
     Route: 065
  2. HYDROXYCHLOROQUINE SULFATE [Concomitant]
     Indication: PRODUCT USED FOR UNKNOWN INDICATION
     Dosage: UNK
     Route: 065
  3. ASPIRIN [Concomitant]
     Indication: PRODUCT USED FOR UNKNOWN INDICATION
     Dosage: UNK
     Route: 065
  4. SIMVASTATIN [Concomitant]
     Indication: PRODUCT USED FOR UNKNOWN INDICATION
     Dosage: UNK
     Route: 065
  5. LAMOTRIGINE [Suspect]
     Indication: BIPOLAR DISORDER
     Dosage: 50 MG, BID
     Route: 048
  6. VENLAFAXINE [Concomitant]
     Indication: PRODUCT USED FOR UNKNOWN INDICATION
     Dosage: UNK
     Route: 065
  7. DEPAKOTE [Suspect]
     Indication: BIPOLAR DISORDER
     Dosage: 750 MG, TID
     Route: 048

REACTIONS (5)
  - RASH MACULO-PAPULAR [None]
  - DRUG INTERACTION [None]
  - STEVENS-JOHNSON SYNDROME [None]
  - C-REACTIVE PROTEIN INCREASED [None]
  - MUSCULAR WEAKNESS [None]
